FAERS Safety Report 4871893-9 (Version None)
Quarter: 2006Q1

REPORT INFORMATION
  Report Type: 
  Country: None (occurrence: None)
  Receive Date: 20060104
  Receipt Date: 20051129
  Transmission Date: 20060701
  Serious: Yes (Hospitalization, Disabling, Other)
  Sender: FDA-Public Use
  Company Number: US-MERCK-0511USA04562

PATIENT
  Age: 52 Year
  Sex: Female
  Weight: 91 kg

DRUGS (9)
  1. VIOXX [Suspect]
     Indication: PAIN
     Route: 048
     Dates: start: 19991001, end: 20040901
  2. GLYBURIDE [Concomitant]
     Route: 065
  3. PREMARIN [Concomitant]
     Route: 065
  4. ATENOLOL [Concomitant]
     Route: 065
  5. PLAVIX [Concomitant]
     Route: 065
  6. COREG [Concomitant]
     Route: 065
  7. ISOSORBIDE MONONITRATE [Concomitant]
     Route: 065
  8. FAMOTIDINE [Concomitant]
     Route: 065
  9. GLIPIZIDE [Concomitant]
     Route: 065

REACTIONS (17)
  - ANXIETY [None]
  - BLOOD TRIGLYCERIDES INCREASED [None]
  - BRADYCARDIA [None]
  - CHEST PAIN [None]
  - CORONARY ARTERY DISEASE [None]
  - ESSENTIAL HYPERTENSION [None]
  - GASTROINTESTINAL DISORDER [None]
  - INJURY [None]
  - INSULIN-REQUIRING TYPE II DIABETES MELLITUS [None]
  - JOINT SPRAIN [None]
  - MYOCARDIAL INFARCTION [None]
  - MYOCARDIAL ISCHAEMIA [None]
  - MYOSITIS [None]
  - OBESITY [None]
  - PYREXIA [None]
  - ROAD TRAFFIC ACCIDENT [None]
  - SYNCOPE [None]
